FAERS Safety Report 10311332 (Version 1)
Quarter: 2014Q3

REPORT INFORMATION
  Report Type: Spontaneous
  Country: IN (occurrence: None)
  Receive Date: 20140716
  Receipt Date: 20140716
  Transmission Date: 20150326
  Serious: Yes (Other)
  Sender: FDA-Public Use
  Company Number: None

PATIENT
  Age: 67 Year
  Sex: Male
  Weight: 70 kg

DRUGS (1)
  1. SORAFENIB [Suspect]
     Active Substance: SORAFENIB
     Indication: ADRENAL GLAND CANCER METASTATIC
     Dosage: 2 PILLS?TWICE DAILY?TAKEN BY MOUTH
     Route: 048
     Dates: start: 20140702, end: 20140712

REACTIONS (5)
  - Gingival inflammation [None]
  - Stomatitis [None]
  - Pyrexia [None]
  - Palmar-plantar erythrodysaesthesia syndrome [None]
  - Asthenia [None]

NARRATIVE: CASE EVENT DATE: 20140702
